FAERS Safety Report 7938988-4 (Version None)
Quarter: 2011Q4

REPORT INFORMATION
  Report Type: 
  Country: None (occurrence: None)
  Receive Date: 20111124
  Receipt Date: 20111121
  Transmission Date: 20120403
  Serious: No
  Sender: FDA-Public Use
  Company Number: US-PFIZER INC-2011232790

PATIENT
  Sex: Male
  Weight: 122 kg

DRUGS (6)
  1. OMEPRAZOLE [Concomitant]
     Dosage: 40 MG, DAILY
     Dates: start: 20110201
  2. FEXOFENADINE [Concomitant]
     Dosage: UNK
  3. LYRICA [Suspect]
     Indication: FIBROMYALGIA
     Dosage: 150 MG, 2X/DAY
     Route: 048
     Dates: end: 20110819
  4. CYMBALTA [Concomitant]
     Dosage: 60 MG, DAILY
  5. FENOFIBRATE [Concomitant]
     Dosage: 160 MG, DAILY
  6. BENICAR [Concomitant]
     Dosage: 40 MG, DAILY

REACTIONS (3)
  - BURNOUT SYNDROME [None]
  - DRUG INEFFECTIVE [None]
  - BLOOD CREATININE INCREASED [None]
